FAERS Safety Report 5081675-3 (Version None)
Quarter: 2006Q3

REPORT INFORMATION
  Report Type: 
  Country: None (occurrence: None)
  Receive Date: 20060816
  Receipt Date: 20060802
  Transmission Date: 20061208
  Serious: Yes (Other)
  Sender: FDA-Public Use
  Company Number: US-ROCHE-457774

PATIENT
  Age: 26 Year
  Sex: Female

DRUGS (6)
  1. ALL-TRANS-RETINOIC ACID [Suspect]
     Route: 065
  2. IDARUBICIN HCL [Suspect]
     Dosage: FOR 4 DAYS FOLLOWED BY TWO CYCLES FOR THREE DAYS 1 MONTH APART
     Route: 042
     Dates: end: 19950215
  3. MERCAPTOPURINE [Suspect]
     Dosage: FOR 5 DAYS EVERY MONTH
     Route: 042
     Dates: end: 19950215
  4. VINCRISTINE [Suspect]
     Dosage: ON DAY 1 EVERY MONTH
     Route: 042
     Dates: end: 19950215
  5. METHOTREXATE [Suspect]
     Dosage: FOR 5 DAYS EVERY MONTH
     Route: 042
     Dates: end: 19950215
  6. PREDNISONE [Suspect]
     Dosage: FOR 5 DAYS EVERY MONTH
     Route: 065
     Dates: end: 19950215

REACTIONS (1)
  - MYELODYSPLASTIC SYNDROME [None]
